FAERS Safety Report 22636790 (Version 1)
Quarter: 2023Q2

REPORT INFORMATION
  Report Type: Spontaneous
  Country: GB (occurrence: GB)
  Receive Date: 20230626
  Receipt Date: 20230626
  Transmission Date: 20230721
  Serious: Yes (Hospitalization)
  Sender: FDA-Public Use
  Company Number: GB-Accord-362901

PATIENT
  Sex: Male
  Weight: 69 kg

DRUGS (18)
  1. ETOPOSIDE [Suspect]
     Active Substance: ETOPOSIDE
     Indication: Osteosarcoma recurrent
     Dosage: CYCLICAL
     Route: 042
     Dates: start: 20210617, end: 20211002
  2. IFOSFAMIDE [Suspect]
     Active Substance: IFOSFAMIDE
     Indication: Osteosarcoma recurrent
     Dosage: CYCLICAL
     Route: 042
     Dates: start: 20210617, end: 20211002
  3. LENVATINIB [Suspect]
     Active Substance: LENVATINIB
     Indication: Osteosarcoma recurrent
     Dosage: ONCE A DAY
     Route: 048
     Dates: start: 20210930, end: 20211108
  4. CLONIDINE [Concomitant]
     Active Substance: CLONIDINE
     Route: 048
     Dates: start: 20220913, end: 20220916
  5. DALTEPARIN [Concomitant]
     Active Substance: DALTEPARIN
     Indication: Prophylaxis
     Dosage: 5000 UNITS
     Route: 058
     Dates: start: 20220914, end: 20220921
  6. DOCUSATE [Concomitant]
     Active Substance: DOCUSATE
     Dosage: 12 HR, PRN
     Route: 048
     Dates: start: 20190930
  7. DOMPERIDONE [Concomitant]
     Active Substance: DOMPERIDONE
     Indication: Antiemetic supportive care
     Dosage: 8 HR
     Route: 048
     Dates: start: 20221003
  8. GEMCITABINE [Concomitant]
     Active Substance: GEMCITABINE
     Dates: start: 20221004
  9. LEVOTHYROXINE [Concomitant]
     Active Substance: LEVOTHYROXINE
     Indication: Hypothyroidism
     Dosage: 1 D
     Route: 048
     Dates: start: 20220715
  10. LEVOBUPIVACAINE HYDROCHLORIDE [Concomitant]
     Active Substance: LEVOBUPIVACAINE HYDROCHLORIDE
     Dosage: 0.125% IN 200 ML, INTRAVENOUS INFUSION
     Route: 042
     Dates: start: 20220912, end: 20220915
  11. MORPHINE SULFATE [Concomitant]
     Active Substance: MORPHINE SULFATE
     Indication: Pain
     Dosage: 12 HR
     Route: 048
     Dates: start: 20220302, end: 2022
  12. SENNA [Concomitant]
     Active Substance: SENNA LEAF\SENNOSIDES\SENNOSIDES A AND B
     Indication: Constipation
     Dosage: AS REQUIRED
     Route: 048
     Dates: start: 20220913, end: 20220915
  13. SODIUM CHLORIDE [Concomitant]
     Active Substance: SODIUM CHLORIDE
     Dosage: TOTAL
     Dates: start: 20220915, end: 20220915
  14. SENNA [Concomitant]
     Active Substance: SENNA LEAF\SENNOSIDES\SENNOSIDES A AND B
     Indication: Constipation
     Dosage: 1 D
     Route: 048
     Dates: start: 20221003
  15. MORPHINE SULFATE [Concomitant]
     Active Substance: MORPHINE SULFATE
     Indication: Pain
     Dosage: 12 HR
     Route: 048
     Dates: start: 20221003
  16. LENVATINIB [Suspect]
     Active Substance: LENVATINIB
     Indication: Osteosarcoma recurrent
     Dosage: ONCE A DAY
     Route: 048
     Dates: start: 20211115, end: 20220205
  17. LENVATINIB [Suspect]
     Active Substance: LENVATINIB
     Indication: Osteosarcoma recurrent
     Dosage: ONCE A DAY
     Route: 048
     Dates: start: 20220210, end: 20220410
  18. LENVATINIB [Suspect]
     Active Substance: LENVATINIB
     Indication: Osteosarcoma recurrent
     Dosage: ONCE A DAY
     Route: 048
     Dates: start: 20220414, end: 20220907

REACTIONS (3)
  - Pneumothorax [Recovered/Resolved]
  - Oedema peripheral [Not Recovered/Not Resolved]
  - Pyrexia [Recovered/Resolved]

NARRATIVE: CASE EVENT DATE: 20220907
